FAERS Safety Report 8421683-5 (Version None)
Quarter: 2012Q2

REPORT INFORMATION
  Report Type: 
  Country: None (occurrence: None)
  Receive Date: 20120608
  Receipt Date: 20120531
  Transmission Date: 20120825
  Serious: Yes (Disabling)
  Sender: FDA-Public Use
  Company Number: BE-JNJFOC-20120602435

PATIENT
  Sex: Female

DRUGS (11)
  1. LOPRESSOR [Concomitant]
  2. JANUVIA [Concomitant]
  3. ENALAPRIL MALEATE AND HYDROCHLOROTHIAZIDE [Concomitant]
  4. CORDARONE [Concomitant]
  5. ASPIRIN [Concomitant]
  6. BUMETANIDE [Concomitant]
  7. ALLOPURINOL [Concomitant]
  8. MEDROL [Concomitant]
  9. TRAMADOL HCL [Concomitant]
  10. XARELTO [Suspect]
     Indication: CEREBROVASCULAR ACCIDENT PROPHYLAXIS
     Route: 048
     Dates: start: 20120220, end: 20120320
  11. METFORMIN HCL [Concomitant]

REACTIONS (2)
  - DECREASED APPETITE [None]
  - FATIGUE [None]
